FAERS Safety Report 10073320 (Version 4)
Quarter: 2014Q2

REPORT INFORMATION
  Report Type: Report from Study
  Country: US (occurrence: US)
  Receive Date: 20140411
  Receipt Date: 20140522
  Transmission Date: 20141212
  Serious: Yes (Life-Threatening, Hospitalization)
  Sender: FDA-Public Use
  Company Number: US-JNJFOC-20140407030

PATIENT
  Age: 29 Year
  Sex: Female

DRUGS (6)
  1. NUCYNTA ER [Suspect]
     Indication: PRODUCT USED FOR UNKNOWN INDICATION
     Route: 065
  2. RISPERIDONE [Suspect]
     Indication: PRODUCT USED FOR UNKNOWN INDICATION
     Route: 048
  3. FLUOXETINE [Suspect]
     Indication: PRODUCT USED FOR UNKNOWN INDICATION
     Route: 048
  4. MIRTAZAPINE [Suspect]
     Indication: PRODUCT USED FOR UNKNOWN INDICATION
     Route: 048
  5. CYCLOBENZAPRINE [Suspect]
     Indication: PRODUCT USED FOR UNKNOWN INDICATION
     Route: 048
  6. PRAZOSIN [Suspect]
     Indication: PRODUCT USED FOR UNKNOWN INDICATION
     Route: 048

REACTIONS (15)
  - Suicide attempt [Unknown]
  - Respiratory rate decreased [Recovered/Resolved]
  - Loss of consciousness [Recovered/Resolved]
  - Agitation [Unknown]
  - Coma [Recovered/Resolved]
  - Restlessness [Recovered/Resolved]
  - Tachycardia [Unknown]
  - Unresponsive to stimuli [Recovered/Resolved]
  - Somnolence [Unknown]
  - Rash [Recovered/Resolved]
  - Speech disorder [Recovered/Resolved]
  - Hyporeflexia [Unknown]
  - Drug withdrawal syndrome [Unknown]
  - Pyrexia [Recovered/Resolved]
  - Intentional overdose [Unknown]
